FAERS Safety Report 7151975-1 (Version None)
Quarter: 2010Q4

REPORT INFORMATION
  Report Type: 
  Country: None (occurrence: None)
  Receive Date: 20101211
  Receipt Date: 20101201
  Transmission Date: 20110411
  Serious: Yes (Hospitalization, Other)
  Sender: FDA-Public Use
  Company Number: JP-PFIZER INC-2010151207

PATIENT
  Age: 77 Year
  Sex: Female

DRUGS (5)
  1. LYRICA [Suspect]
     Indication: POST HERPETIC NEURALGIA
     Dosage: 25 MG, 2X/DAY
     Route: 048
     Dates: start: 20101001, end: 20101101
  2. LOXONIN [Suspect]
     Dosage: UNK
  3. HYPEN [Concomitant]
     Dosage: UNK
     Route: 048
     Dates: end: 20101101
  4. MUCOSTA [Concomitant]
     Dosage: UNK
     Route: 048
     Dates: end: 20101101
  5. METHYCOBAL [Concomitant]
     Dosage: UNK
     Route: 048

REACTIONS (4)
  - HEPATIC FUNCTION ABNORMAL [None]
  - PYREXIA [None]
  - RASH [None]
  - RENAL IMPAIRMENT [None]
